FAERS Safety Report 4470862-0 (Version None)
Quarter: 2004Q4

REPORT INFORMATION
  Report Type: 
  Country: None (occurrence: None)
  Receive Date: 20041011
  Receipt Date: 20040929
  Transmission Date: 20050328
  Serious: Yes (Life-Threatening)
  Sender: FDA-Public Use
  Company Number: FR-JNJFOC-20041000042

PATIENT
  Age: 74 Year
  Sex: Female

DRUGS (8)
  1. RISPERDAL [Suspect]
     Route: 049
  2. RISPERDAL [Suspect]
     Indication: SCHIZOPHRENIA
     Route: 049
  3. ALDACTAZINE [Concomitant]
  4. ALDACTAZINE [Concomitant]
  5. MOGADON [Concomitant]
  6. TERCIAN [Concomitant]
  7. LASILIX [Concomitant]
  8. TRANXENE [Concomitant]

REACTIONS (9)
  - DEHYDRATION [None]
  - EXTRAPYRAMIDAL DISORDER [None]
  - HAEMOCONCENTRATION [None]
  - HYPERNATRAEMIA [None]
  - RENAL FAILURE [None]
  - RENAL FAILURE ACUTE [None]
  - RESPIRATORY ARREST [None]
  - SOMNOLENCE [None]
  - WHITE BLOOD CELL COUNT INCREASED [None]
